FAERS Safety Report 19855695 (Version 1)
Quarter: 2021Q3

REPORT INFORMATION
  Report Type: Spontaneous
  Country: US (occurrence: US)
  Receive Date: 20210920
  Receipt Date: 20210920
  Transmission Date: 20211014
  Serious: Yes (Death)
  Sender: FDA-Public Use
  Company Number: None

PATIENT
  Age: 55 Year
  Sex: Male
  Weight: 56.25 kg

DRUGS (9)
  1. LEVOFLOXACINE 500MG [Concomitant]
  2. POSACONAZOLE 100MG [Concomitant]
  3. OMEPRAZOLE 40MG [Concomitant]
     Active Substance: OMEPRAZOLE
  4. TRAZODONE 150MG [Concomitant]
  5. VENCLEXTA [Suspect]
     Active Substance: VENETOCLAX
     Indication: ACUTE MYELOID LEUKAEMIA
     Route: 048
     Dates: start: 20210520, end: 20210917
  6. METOPROLOL TART. 25MG [Concomitant]
  7. ATOVAQUONE SUSPENSION 750MG/5ML [Concomitant]
  8. PREDNISONE 10MG [Concomitant]
     Active Substance: PREDNISONE
  9. ACYCLOVIR 150MG [Concomitant]

REACTIONS (1)
  - Death [None]

NARRATIVE: CASE EVENT DATE: 20210917
